FAERS Safety Report 26125955 (Version 1)
Quarter: 2025Q4

REPORT INFORMATION
  Report Type: Spontaneous
  Country: US (occurrence: US)
  Receive Date: 20251205
  Receipt Date: 20251205
  Transmission Date: 20260118
  Serious: No
  Sender: BAYER HEALTHCARE PHARMACEUTICALS INC.
  Company Number: US-BAYER-2025A160171

PATIENT
  Age: 54 Year
  Sex: Female

DRUGS (2)
  1. ACARBOSE [Suspect]
     Active Substance: ACARBOSE
     Indication: Postprandial hypoglycaemia
  2. HYDROCORTISONE [Concomitant]
     Active Substance: HYDROCORTISONE

REACTIONS (3)
  - Product use in unapproved indication [None]
  - Product prescribing issue [None]
  - Drug ineffective for unapproved indication [None]
